FAERS Safety Report 6165817-4 (Version None)
Quarter: 2009Q2

REPORT INFORMATION
  Report Type: 
  Country: None (occurrence: None)
  Receive Date: 20090422
  Receipt Date: 20090415
  Transmission Date: 20091009
  Serious: Yes (Hospitalization)
  Sender: FDA-Public Use
  Company Number: GXKR2009DE04586

PATIENT
  Age: 20 Year
  Sex: Female

DRUGS (2)
  1. PREDNISOLONE [Suspect]
     Indication: CROHN'S DISEASE
     Dosage: 20 MG, QD, ORAL
     Route: 048
     Dates: start: 20080626
  2. AZATHIOPRINE [Suspect]
     Indication: CROHN'S DISEASE
     Dosage: 100 MG, QD, ORAL
     Route: 048
     Dates: start: 20080626, end: 20080731

REACTIONS (2)
  - DRUG INTERACTION [None]
  - PANCYTOPENIA [None]
